FAERS Safety Report 23340560 (Version 1)
Quarter: 2023Q4

REPORT INFORMATION
  Report Type: Spontaneous
  Country: US (occurrence: US)
  Receive Date: 20231227
  Receipt Date: 20231227
  Transmission Date: 20240110
  Serious: No
  Sender: FDA-Public Use
  Company Number: US-BAUSCHBL-2023BNL012773

PATIENT
  Sex: Female

DRUGS (2)
  1. MIEBO [Suspect]
     Active Substance: PERFLUOROHEXYLOCTANE
     Indication: Dry eye
     Route: 047
     Dates: start: 20231103, end: 20231111
  2. MIEBO [Suspect]
     Active Substance: PERFLUOROHEXYLOCTANE
     Route: 047
     Dates: start: 202311, end: 20231129

REACTIONS (3)
  - Hypersensitivity [Not Recovered/Not Resolved]
  - Feeling jittery [Unknown]
  - Inappropriate schedule of product administration [Unknown]

NARRATIVE: CASE EVENT DATE: 20231101
